FAERS Safety Report 24019171 (Version 2)
Quarter: 2024Q4

REPORT INFORMATION
  Report Type: Spontaneous
  Country: BR (occurrence: BR)
  Receive Date: 20240627
  Receipt Date: 20241112
  Transmission Date: 20250115
  Serious: Yes (Hospitalization, Other)
  Sender: BAYER HEALTHCARE PHARMACEUTICALS INC.
  Company Number: BR-BAYER-2024A088393

PATIENT
  Age: 34 Year
  Sex: Female

DRUGS (2)
  1. MIRENA [Suspect]
     Active Substance: LEVONORGESTREL
     Indication: Contraception
     Dosage: 20?G/DAY
     Route: 015
     Dates: start: 20230327, end: 20240601
  2. DIENOGEST\ESTRADIOL VALERATE [Suspect]
     Active Substance: DIENOGEST\ESTRADIOL VALERATE
     Dosage: UNK
     Route: 048

REACTIONS (9)
  - Uterine perforation [None]
  - Blood loss anaemia [None]
  - Abdominal pain lower [None]
  - Discomfort [None]
  - Procedural pain [Recovering/Resolving]
  - Post procedural haemorrhage [Recovering/Resolving]
  - Hormone level abnormal [None]
  - Intermenstrual bleeding [None]
  - Emotional disorder [None]

NARRATIVE: CASE EVENT DATE: 20230101
